FAERS Safety Report 4336690-1 (Version None)
Quarter: 2004Q2

REPORT INFORMATION
  Report Type: 
  Country: None (occurrence: None)
  Receive Date: 20040408
  Receipt Date: 20040329
  Transmission Date: 20050107
  Serious: No
  Sender: FDA-Public Use
  Company Number: S04-USA-01685-01

PATIENT
  Age: 66 Year
  Sex: Female

DRUGS (4)
  1. CELEXA [Suspect]
     Dosage: 40 MG QD, PO; 20 MG QD PO
     Route: 048
     Dates: start: 20020401
  2. DIAZEPAM [Concomitant]
  3. CELEBREX [Concomitant]
  4. NASAREL (FLUNISOLIDE) [Concomitant]

REACTIONS (3)
  - POST PROCEDURAL URINE LEAK [None]
  - URINARY INCONTINENCE [None]
  - URINARY RETENTION [None]
